FAERS Safety Report 24438234 (Version 1)
Quarter: 2024Q4

REPORT INFORMATION
  Report Type: Spontaneous
  Country: US (occurrence: US)
  Receive Date: 20241015
  Receipt Date: 20241015
  Transmission Date: 20250115
  Serious: No
  Sender: ALCON
  Company Number: US-ALCON LABORATORIES-ALC2024US003244

PATIENT
  Age: 81 Year
  Sex: Male

DRUGS (2)
  1. INVELTYS [Suspect]
     Active Substance: LOTEPREDNOL ETABONATE
     Indication: Mydriasis
     Dosage: USED THE EYEDROP FOR SECOND TIME, ONE DROP IN LEFT EYE
     Route: 047
  2. INVELTYS [Suspect]
     Active Substance: LOTEPREDNOL ETABONATE
     Indication: Eye haemorrhage

REACTIONS (2)
  - Mydriasis [Unknown]
  - Product prescribing issue [Unknown]
